FAERS Safety Report 7949843-8 (Version None)
Quarter: 2011Q4

REPORT INFORMATION
  Report Type: 
  Country: None (occurrence: None)
  Receive Date: 20111123
  Receipt Date: 20111110
  Transmission Date: 20120403
  Serious: Yes (Hospitalization, Other)
  Sender: FDA-Public Use
  Company Number: 2011MA016338

PATIENT
  Age: 75 Year
  Sex: Female
  Weight: 54.4316 kg

DRUGS (15)
  1. METFORMIN HCL [Concomitant]
  2. NITROGLYCERIN [Concomitant]
  3. ENALAPRIL MALEATE [Concomitant]
  4. TOPROL-XL [Concomitant]
  5. ARIMIDEX [Concomitant]
  6. COUMADIN [Concomitant]
  7. INSPRA [Concomitant]
  8. GLYBURIDE [Concomitant]
  9. VYTORIN [Concomitant]
  10. DIGOXIN [Suspect]
     Indication: CARDIAC DISORDER
     Dosage: 0.25 MG;QD;PO
     Route: 048
     Dates: start: 20070105
  11. ALLOPURINOL [Concomitant]
  12. ASPIRIN [Concomitant]
  13. LASIX [Concomitant]
  14. ANTIBIOTICS [Concomitant]
  15. AMIODARONE HCL [Concomitant]

REACTIONS (43)
  - TREMOR [None]
  - ANGINA PECTORIS [None]
  - HYPOPROTHROMBINAEMIA [None]
  - GASTROINTESTINAL HAEMORRHAGE [None]
  - BLOOD THYROID STIMULATING HORMONE INCREASED [None]
  - LOSS OF CONTROL OF LEGS [None]
  - INSOMNIA [None]
  - BREAST CANCER [None]
  - HYPERPARATHYROIDISM [None]
  - CELLULITIS [None]
  - CONFUSIONAL STATE [None]
  - VOMITING [None]
  - PAIN IN EXTREMITY [None]
  - DEHYDRATION [None]
  - REFUSAL OF TREATMENT BY PATIENT [None]
  - EMOTIONAL DISORDER [None]
  - BALANCE DISORDER [None]
  - HYPOPHAGIA [None]
  - ANAEMIA [None]
  - HALLUCINATION [None]
  - DEPRESSION [None]
  - EMOTIONAL DISTRESS [None]
  - ARTHRITIS [None]
  - ISCHAEMIC CARDIOMYOPATHY [None]
  - MULTIPLE INJURIES [None]
  - AMNESIA [None]
  - DIZZINESS [None]
  - TYPE 1 DIABETES MELLITUS [None]
  - ATRIAL FIBRILLATION [None]
  - DECREASED APPETITE [None]
  - MENTAL DISORDER [None]
  - CHEST PAIN [None]
  - TOXICITY TO VARIOUS AGENTS [None]
  - ARTHRALGIA [None]
  - CARDIAC FAILURE CONGESTIVE [None]
  - DIABETES MELLITUS [None]
  - RENAL FAILURE ACUTE [None]
  - OVARIAN CANCER [None]
  - BLOOD CHOLESTEROL INCREASED [None]
  - NAUSEA [None]
  - FALL [None]
  - ASTHENIA [None]
  - FATIGUE [None]
